FAERS Safety Report 13950709 (Version 6)
Quarter: 2017Q4

REPORT INFORMATION
  Report Type: Spontaneous
  Country: JP (occurrence: JP)
  Receive Date: 20170908
  Receipt Date: 20171211
  Transmission Date: 20180320
  Serious: Yes (Life-Threatening, Hospitalization, Disabling, Other)
  Sender: FDA-Public Use
  Company Number: JP-009507513-1708JPN001278J

PATIENT
  Age: 77 Year
  Sex: Female
  Weight: 62 kg

DRUGS (9)
  1. PANTETHINE [Concomitant]
     Active Substance: PANTETHINE
     Dosage: UNK
     Route: 065
  2. CANDESARTAN. [Concomitant]
     Active Substance: CANDESARTAN
     Indication: HYPERTENSION
     Dosage: UNK
     Route: 048
  3. KEYTRUDA [Suspect]
     Active Substance: PEMBROLIZUMAB
     Indication: LUNG ADENOCARCINOMA STAGE III
     Dosage: 200 MG, Q3W
     Route: 041
     Dates: start: 20170616, end: 20170616
  4. TRAMAL [Concomitant]
     Active Substance: TRAMADOL
     Dosage: UNK
     Route: 065
  5. RINDERON A [Concomitant]
     Active Substance: BETAMETHASONE SODIUM PHOSPHATE\NEOMYCIN SULFATE
     Dosage: UNK
     Route: 065
  6. CALONAL [Concomitant]
     Active Substance: ACETAMINOPHEN
     Dosage: UNK
     Route: 065
  7. PANVITAN [Concomitant]
     Dosage: UNK
     Route: 048
  8. MAGNESIUM OXIDE MOCHIDA [Concomitant]
     Dosage: UNK
     Route: 048
  9. FUROSEMIDE. [Concomitant]
     Active Substance: FUROSEMIDE
     Indication: HYPERTENSION
     Dosage: UNK
     Route: 048

REACTIONS (8)
  - Alanine aminotransferase increased [Unknown]
  - Myositis [Not Recovered/Not Resolved]
  - Myasthenia gravis [Recovered/Resolved with Sequelae]
  - Pneumonia bacterial [Unknown]
  - Diarrhoea [Unknown]
  - Platelet count decreased [Recovered/Resolved]
  - Aspartate aminotransferase increased [Unknown]
  - Blood lactate dehydrogenase increased [Unknown]

NARRATIVE: CASE EVENT DATE: 20170707
